FAERS Safety Report 11875435 (Version 1)
Quarter: 2015Q4

REPORT INFORMATION
  Report Type: Spontaneous
  Country: US (occurrence: None)
  Receive Date: 20151228
  Receipt Date: 20151228
  Transmission Date: 20160305
  Serious: No
  Sender: FDA-Public Use
  Company Number: None

PATIENT
  Age: 69 Year
  Sex: Female

DRUGS (12)
  1. LIDOCAINE. [Concomitant]
     Active Substance: LIDOCAINE
  2. OMEPRAZOLE. [Concomitant]
     Active Substance: OMEPRAZOLE
  3. Q-DRYL [Concomitant]
     Active Substance: DIPHENHYDRAMINE HYDROCHLORIDE
  4. BENICAR [Concomitant]
     Active Substance: OLMESARTAN MEDOXOMIL
  5. ALPRAZOLAM. [Concomitant]
     Active Substance: ALPRAZOLAM
  6. EXEMESTANE. [Concomitant]
     Active Substance: EXEMESTANE
  7. NYSTATIN. [Concomitant]
     Active Substance: NYSTATIN
  8. AMOXICILLIN. [Concomitant]
     Active Substance: AMOXICILLIN
  9. ESCITALOPRAM [Concomitant]
     Active Substance: ESCITALOPRAM OXALATE
  10. FASLODEX [Suspect]
     Active Substance: FULVESTRANT
  11. MELOXICAM. [Concomitant]
     Active Substance: MELOXICAM
  12. SIMVASTATIN. [Concomitant]
     Active Substance: SIMVASTATIN

REACTIONS (1)
  - Vomiting [None]

NARRATIVE: CASE EVENT DATE: 20151223
